FAERS Safety Report 7148435-0 (Version None)
Quarter: 2010Q4

REPORT INFORMATION
  Report Type: 
  Country: None (occurrence: None)
  Receive Date: 20101209
  Receipt Date: 20101203
  Transmission Date: 20110411
  Serious: Yes (Life-Threatening, Hospitalization, Other)
  Sender: FDA-Public Use
  Company Number: KR-PFIZER INC-2010124532

PATIENT
  Age: 66 Year
  Sex: Male
  Weight: 68 kg

DRUGS (8)
  1. BLINDED *NO SUBJECT DRUG [Suspect]
     Indication: PROSTATE CANCER
     Dosage: UNK, 1X/DAY
     Route: 048
     Dates: start: 20100611, end: 20100923
  2. BLINDED *PLACEBO [Suspect]
     Indication: PROSTATE CANCER
     Dosage: UNK, 1X/DAY
     Route: 048
     Dates: start: 20100611, end: 20100923
  3. SUNITINIB MALATE [Suspect]
     Indication: PROSTATE CANCER
     Dosage: UNK, 1X/DAY
     Route: 048
     Dates: start: 20100611, end: 20100923
  4. PREDNISOLONE [Suspect]
     Indication: PROSTATE CANCER
     Dosage: 5 MG, 2X/DAY
     Route: 048
     Dates: start: 20100611, end: 20100923
  5. PRAMIPEXOLE DIHYDROCHLORIDE [Concomitant]
     Indication: PARKINSON'S DISEASE
     Dosage: 3 MG, 1X/DAY
     Route: 048
     Dates: start: 20070101
  6. MOSAPRIDE CITRATE [Concomitant]
     Indication: PARKINSON'S DISEASE
     Dosage: 15 MG, 1X/DAY
     Route: 048
     Dates: start: 20070101
  7. CIMETIDINE [Concomitant]
     Indication: PROPHYLAXIS
     Dosage: 200 MG, 2X/DAY
     Route: 048
     Dates: start: 20100611, end: 20100923
  8. SYNTHROID [Concomitant]
     Indication: HYPOTHYROIDISM
     Dosage: 0.05 MG, 1X/DAY
     Route: 048
     Dates: start: 20100903

REACTIONS (2)
  - HYDROPNEUMOTHORAX [None]
  - HYPOXIA [None]
